FAERS Safety Report 5935919-3 (Version None)
Quarter: 2008Q4

REPORT INFORMATION
  Report Type: 
  Country: None (occurrence: None)
  Receive Date: 20081030
  Receipt Date: 20080805
  Transmission Date: 20090506
  Serious: No
  Sender: FDA-Public Use
  Company Number: A0741154A

PATIENT
  Age: 41 Year
  Sex: Female

DRUGS (5)
  1. IMITREX [Suspect]
     Indication: MIGRAINE
     Dosage: 1SPR AS REQUIRED
     Route: 045
     Dates: start: 20080601
  2. IMITREX [Suspect]
     Dosage: 100MG AS REQUIRED
     Route: 048
     Dates: start: 20070101
  3. TREXIMET [Suspect]
     Indication: MIGRAINE
     Dosage: 1TAB AS REQUIRED
     Route: 048
     Dates: start: 20080701, end: 20080701
  4. LASIX [Concomitant]
  5. POTASSIUM CHLORIDE [Concomitant]

REACTIONS (1)
  - DRUG INEFFECTIVE [None]
